FAERS Safety Report 9108190 (Version 1)
Quarter: 2013Q1

REPORT INFORMATION
  Report Type: Spontaneous
  Country: FR (occurrence: FR)
  Receive Date: 20130221
  Receipt Date: 20130221
  Transmission Date: 20140127
  Serious: Yes (Hospitalization)
  Sender: FDA-Public Use
  Company Number: FR-PFIZER INC-2013060787

PATIENT
  Age: 8 Year
  Sex: Male

DRUGS (5)
  1. VFEND [Suspect]
     Indication: BRONCHOPULMONARY ASPERGILLOSIS
     Dosage: UNK
     Route: 042
     Dates: start: 20110131, end: 20110222
  2. VFEND [Suspect]
     Indication: CEREBRAL ASPERGILLOSIS
     Dosage: 320 MG, 2X/DAY
     Route: 048
     Dates: start: 20110223, end: 20130122
  3. PURINETHOL [Concomitant]
     Dosage: 50 MG, 1X/DAY
     Dates: start: 20120906
  4. METHOTREXATE [Concomitant]
     Dosage: 22.5 MG, WEEKLY
     Dates: start: 20120906
  5. BACTRIM [Concomitant]
     Dosage: UNK
     Dates: start: 20120906

REACTIONS (1)
  - Fluoride increased [Unknown]
